FAERS Safety Report 8591048-4 (Version None)
Quarter: 2012Q3

REPORT INFORMATION
  Report Type: 
  Country: None (occurrence: None)
  Receive Date: 20120813
  Receipt Date: 20120806
  Transmission Date: 20120928
  Serious: Yes (Death, Life-Threatening, Hospitalization, Other)
  Sender: FDA-Public Use
  Company Number: JP-CELGENEUS-087-50794-11123457

PATIENT
  Sex: Male
  Weight: 62 kg

DRUGS (15)
  1. VIDAZA [Suspect]
     Indication: MYELODYSPLASTIC SYNDROME
     Dosage: 75 MILLIGRAM/SQ. METER
     Route: 058
     Dates: start: 20110523, end: 20110529
  2. ELNEOPA NO.1 [Concomitant]
     Route: 065
     Dates: start: 20110617, end: 20110617
  3. ELNEOPA NO.2 [Concomitant]
     Route: 065
     Dates: start: 20110618, end: 20110628
  4. ASPARA [Concomitant]
     Route: 065
  5. DEXAMETHASONE SODIUM PHOSPHATE [Concomitant]
     Route: 065
  6. SULFAMETHOXAZOLE AND TRIMETHOPRIM [Concomitant]
     Route: 065
  7. TPN ELECTROLYTES IN PLASTIC CONTAINER [Concomitant]
     Route: 065
  8. CARVEDILOL [Concomitant]
     Route: 065
  9. DIGOXIN [Concomitant]
     Route: 065
  10. PREDNISOLONE [Concomitant]
     Route: 065
  11. EXJADE [Concomitant]
     Route: 065
  12. NATEGLINIDE [Concomitant]
     Route: 065
  13. WARFARIN SODIUM [Concomitant]
     Route: 065
  14. LASIX [Concomitant]
     Route: 065
  15. POTASSIUM [Concomitant]
     Route: 065

REACTIONS (5)
  - CARDIAC FAILURE [None]
  - CYSTITIS [None]
  - MALAISE [None]
  - HEPATIC CONGESTION [None]
  - HYPOPROTEINAEMIA [None]
